FAERS Safety Report 9314595 (Version 1)
Quarter: 2013Q2

REPORT INFORMATION
  Report Type: Spontaneous
  Country: CA (occurrence: CA)
  Receive Date: 20130529
  Receipt Date: 20130529
  Transmission Date: 20140414
  Serious: Yes (Hospitalization, Other)
  Sender: FDA-Public Use
  Company Number: CA-PFIZER INC-2013159548

PATIENT
  Age: 63 Year
  Sex: Female

DRUGS (7)
  1. CELEBREX [Suspect]
     Indication: RHEUMATOID ARTHRITIS
     Dosage: 200MG IN THE MORNING AND AT BEDTIME
     Dates: start: 20030615
  2. LASIX [Concomitant]
     Dosage: UNK
  3. RATIO-CLINDAMYCIN [Concomitant]
     Dosage: UNK
  4. NOVO-METOPROL [Concomitant]
     Dosage: UNK
  5. NOVASEN [Concomitant]
     Dosage: UNK
  6. NITRO-DUR PATCH [Concomitant]
     Dosage: UNK
  7. SLOW-K [Concomitant]
     Dosage: UNK

REACTIONS (2)
  - Acute myocardial infarction [Unknown]
  - Acute pulmonary oedema [Unknown]
